FAERS Safety Report 11240429 (Version 1)
Quarter: 2015Q3

REPORT INFORMATION
  Report Type: Spontaneous
  Country: AT (occurrence: AT)
  Receive Date: 20150706
  Receipt Date: 20150706
  Transmission Date: 20151125
  Serious: Yes (Hospitalization, Disabling)
  Sender: FDA-Public Use
  Company Number: AT-TEVA-574501ISR

PATIENT
  Sex: Male

DRUGS (2)
  1. LANSOBENE RATIOPHARM KAPSELN [Suspect]
     Active Substance: LANSOPRAZOLE
     Dates: start: 200605, end: 2013
  2. LANSOBENE RATIOPHARM KAPSELN [Suspect]
     Active Substance: LANSOPRAZOLE
     Indication: GASTRIC PH DECREASED
     Dates: start: 200605, end: 2013

REACTIONS (14)
  - Acetabulum fracture [Recovered/Resolved with Sequelae]
  - Pain [Recovered/Resolved]
  - Joint stiffness [Recovered/Resolved with Sequelae]
  - Walking disability [Recovered/Resolved with Sequelae]
  - Osteoarthritis [Recovered/Resolved with Sequelae]
  - Balance disorder [Recovered/Resolved with Sequelae]
  - Femur fracture [Recovered/Resolved with Sequelae]
  - Fall [Recovered/Resolved with Sequelae]
  - Physical disability [Recovered/Resolved with Sequelae]
  - Joint injury [Recovered/Resolved with Sequelae]
  - Musculoskeletal discomfort [Recovered/Resolved with Sequelae]
  - Arthralgia [Recovered/Resolved with Sequelae]
  - Joint dislocation [Recovered/Resolved with Sequelae]
  - Gait disturbance [Recovered/Resolved with Sequelae]

NARRATIVE: CASE EVENT DATE: 20120423
